FAERS Safety Report 7716927-9 (Version None)
Quarter: 2011Q3

REPORT INFORMATION
  Report Type: 
  Country: None (occurrence: None)
  Receive Date: 20110829
  Receipt Date: 20110819
  Transmission Date: 20111222
  Serious: Yes (Other)
  Sender: FDA-Public Use
  Company Number: US-ASTRAZENECA-2011SE50179

PATIENT
  Sex: Female

DRUGS (2)
  1. NEXIUM [Suspect]
     Route: 048
  2. ARIMIDEX [Suspect]
     Route: 048

REACTIONS (5)
  - SLEEP DISORDER DUE TO A GENERAL MEDICAL CONDITION [None]
  - MYALGIA [None]
  - BREAST CANCER [None]
  - DRUG DOSE OMISSION [None]
  - ARTHRALGIA [None]
